FAERS Safety Report 14345822 (Version 1)
Quarter: 2018Q1

REPORT INFORMATION
  Report Type: Spontaneous
  Country: CA (occurrence: CA)
  Receive Date: 20180103
  Receipt Date: 20180103
  Transmission Date: 20180509
  Serious: Yes (Hospitalization)
  Sender: FDA-Public Use
  Company Number: CA-JNJFOC-20171236052

PATIENT
  Age: 52 Year
  Sex: Male
  Weight: 166 kg

DRUGS (1)
  1. INVOKANA [Suspect]
     Active Substance: CANAGLIFLOZIN
     Indication: DIABETES MELLITUS
     Route: 048

REACTIONS (7)
  - Cholelithiasis [Recovered/Resolved]
  - Hepatic enzyme increased [Recovered/Resolved]
  - Pain [Recovered/Resolved]
  - Diabetic ketoacidosis [Recovered/Resolved]
  - Abdominal pain [Recovered/Resolved]
  - Nausea [Recovered/Resolved]
  - Hypophagia [Recovered/Resolved]
